FAERS Safety Report 9240303 (Version 1)
Quarter: 2013Q1

REPORT INFORMATION
  Report Type: Spontaneous
  Country: US (occurrence: None)
  Receive Date: 20121119
  Receipt Date: 20121119
  Transmission Date: 20140127
  Serious: Yes (Other)
  Sender: FDA-Public Use
  Company Number: 068303

PATIENT
  Sex: Male

DRUGS (3)
  1. LACOSAMIDE [Suspect]
     Indication: CONVULSION
     Dosage: 100 REDUCED DOSE, STRENGTH 100 CONTINUING, NOT CONTINUING
  2. LEVETIRACETAM [Concomitant]
  3. ZONISAMIDE [Concomitant]

REACTIONS (1)
  - Convulsion [None]
